FAERS Safety Report 11200260 (Version 2)
Quarter: 2015Q3

REPORT INFORMATION
  Report Type: Spontaneous
  Country: US (occurrence: US)
  Receive Date: 20150618
  Receipt Date: 20150713
  Transmission Date: 20151125
  Serious: No
  Sender: FDA-Public Use
  Company Number: US-BAYER-2015-346640

PATIENT
  Age: 51 Year
  Sex: Female
  Weight: 77.98 kg

DRUGS (1)
  1. CLARITIN [Suspect]
     Active Substance: LORATADINE
     Indication: SEASONAL ALLERGY
     Dosage: UNK
     Route: 048
     Dates: start: 20150525, end: 20150531

REACTIONS (7)
  - Dizziness [Recovered/Resolved]
  - Epistaxis [Unknown]
  - Asthenia [Unknown]
  - Dry eye [Recovered/Resolved]
  - Headache [Unknown]
  - Feeling abnormal [Unknown]
  - Ocular hyperaemia [Recovered/Resolved]

NARRATIVE: CASE EVENT DATE: 20150526
